FAERS Safety Report 10959854 (Version 2)
Quarter: 2015Q2

REPORT INFORMATION
  Report Type: Spontaneous
  Country: JP (occurrence: JP)
  Receive Date: 20150327
  Receipt Date: 20150413
  Transmission Date: 20150821
  Serious: Yes (Hospitalization, Other)
  Sender: FDA-Public Use
  Company Number: JP-ACCORD-029607

PATIENT
  Age: 71 Year
  Sex: Female

DRUGS (4)
  1. FLUOROURACIL. [Suspect]
     Active Substance: FLUOROURACIL
     Indication: COLORECTAL CANCER
     Dosage: 2400 MG/M2 CONTINUOUS IV INFUSION OF 46H DAY 2, ALSO RECEIVED 400 MG/M2 RAPID IV INFUSION DAYS 1,5.
     Route: 042
  2. BEVACIZUMAB [Suspect]
     Active Substance: BEVACIZUMAB
     Indication: COLORECTAL CANCER
     Dosage: FROM SECOND COURSE.
  3. IRINOTECAN [Suspect]
     Active Substance: IRINOTECAN
     Indication: COLORECTAL CANCER
     Dosage: CPT-11. DAY 1. FOLFIRI REGIMEN
  4. FOLINIC ACID [Suspect]
     Active Substance: LEUCOVORIN
     Indication: COLORECTAL CANCER
     Dosage: FOLFIRI. DAY 1.

REACTIONS (2)
  - Hyperammonaemia [Recovering/Resolving]
  - Weight decreased [Unknown]
